FAERS Safety Report 17424442 (Version 2)
Quarter: 2020Q1

REPORT INFORMATION
  Report Type: Spontaneous
  Country: US (occurrence: US)
  Receive Date: 20200217
  Receipt Date: 20200218
  Transmission Date: 20200409
  Serious: Yes (Hospitalization)
  Sender: FDA-Public Use
  Company Number: US-JNJFOC-20200213069

PATIENT
  Age: 67 Year
  Sex: Male
  Weight: 59.02 kg

DRUGS (3)
  1. TYLENOL REGULAR STRENGTH [Suspect]
     Active Substance: ACETAMINOPHEN
     Indication: NASOPHARYNGITIS
     Dosage: 1 CAPSULE 3 TIMES OVER 2 DAYS, TOOK HIS LAST DOSE OF TYLENOL ON 30-SEP-2019
     Route: 065
     Dates: start: 201909, end: 20190930
  2. DILANTIN [Interacting]
     Active Substance: PHENYTOIN
     Indication: EPILEPSY
     Route: 065
  3. TYLENOL REGULAR STRENGTH [Interacting]
     Active Substance: ACETAMINOPHEN
     Indication: PYREXIA

REACTIONS (9)
  - Aggression [Recovering/Resolving]
  - Generalised tonic-clonic seizure [Recovering/Resolving]
  - Drug level decreased [Recovering/Resolving]
  - Incorrect dose administered [Unknown]
  - Concussion [Recovering/Resolving]
  - Irritability [Recovering/Resolving]
  - Loss of consciousness [Recovered/Resolved]
  - Drug interaction [Recovering/Resolving]
  - Brain injury [Recovering/Resolving]

NARRATIVE: CASE EVENT DATE: 2019
